FAERS Safety Report 5713341-2 (Version None)
Quarter: 2008Q2

REPORT INFORMATION
  Report Type: 
  Country: None (occurrence: None)
  Receive Date: 20080422
  Receipt Date: 20080414
  Transmission Date: 20081010
  Serious: Yes (Other)
  Sender: FDA-Public Use
  Company Number: DE-ABBOTT-08P-062-0446990-00

PATIENT
  Age: 40 Year
  Sex: Male

DRUGS (1)
  1. VALPROATE SODIUM [Suspect]
     Indication: GRAND MAL CONVULSION
     Dosage: 1500 MG DAILY

REACTIONS (4)
  - DRUG LEVEL ABOVE THERAPEUTIC [None]
  - INFERTILITY MALE [None]
  - SPERMATOZOA PROGRESSIVE MOTILITY DECREASED [None]
  - TERATOSPERMIA [None]
